FAERS Safety Report 4944747-7 (Version None)
Quarter: 2006Q1

REPORT INFORMATION
  Report Type: 
  Country: None (occurrence: None)
  Receive Date: 20060315
  Receipt Date: 20060306
  Transmission Date: 20060701
  Serious: Yes (Death)
  Sender: FDA-Public Use
  Company Number: CO-ABBOTT-06P-036-0327490-00

PATIENT
  Sex: Male
  Weight: 60 kg

DRUGS (3)
  1. KALETRA [Suspect]
     Indication: HIV INFECTION
     Dosage: 400/100
     Route: 048
     Dates: start: 20050601, end: 20051201
  2. STAVUDINE [Concomitant]
     Indication: HIV INFECTION
     Route: 048
  3. DIDANOSINE [Concomitant]
     Indication: HIV INFECTION
     Route: 048

REACTIONS (1)
  - PULMONARY OEDEMA [None]
